FAERS Safety Report 8777788 (Version 2)
Quarter: 2012Q4

REPORT INFORMATION
  Report Type: 
  Country: ES (occurrence: ES)
  Receive Date: 20120911
  Receipt Date: 20120917
  Transmission Date: 20130627
  Serious: Yes (Other)
  Sender: FDA-Public Use
  Company Number: PHHO2012ES012994

PATIENT
  Age: 45 Year
  Sex: Female
  Weight: 58.8 kg

DRUGS (7)
  1. EVEROLIMUS [Suspect]
     Indication: RENAL TRANSPLANT
     Dosage: 2.75 mg, UNK
     Dates: start: 20080618
  2. TACROLIMUS [Suspect]
     Indication: RENAL TRANSPLANT
  3. MYFORTIC [Suspect]
     Indication: IMMUNOSUPPRESSION
     Dosage: 360 mg, UNK
     Route: 048
     Dates: start: 20101020
  4. KARVEA [Concomitant]
     Indication: HYPERTENSION
     Dosage: 150 mg, UNK
     Route: 048
     Dates: start: 20090113
  5. PANTECTA [Concomitant]
     Indication: PROPHYLAXIS
     Dosage: 20 mg, BID
     Route: 048
     Dates: start: 20101020
  6. NATECAL D [Concomitant]
     Indication: PROPHYLAXIS
     Dosage: 1500 pg/400 UI, UNK
     Route: 048
     Dates: start: 20110218
  7. PREDNISONE [Concomitant]
     Indication: ERYTHEMA NODOSUM
     Dosage: 20 mg, UNK
     Route: 048
     Dates: start: 201208

REACTIONS (2)
  - Papillary thyroid cancer [Recovering/Resolving]
  - Thyroid cancer metastatic [None]
